FAERS Safety Report 8293486-6 (Version None)
Quarter: 2012Q2

REPORT INFORMATION
  Report Type: 
  Country: None (occurrence: None)
  Receive Date: 20120417
  Receipt Date: 20120405
  Transmission Date: 20120825
  Serious: No
  Sender: FDA-Public Use
  Company Number: US-ELI_LILLY_AND_COMPANY-US201204002493

PATIENT
  Age: 66 Year
  Sex: Female
  Weight: 54.422 kg

DRUGS (4)
  1. ADCIRCA [Suspect]
  2. COUMADIN [Concomitant]
  3. REMODULIN [Concomitant]
     Indication: COR PULMONALE CHRONIC
     Dosage: 66.6 DF, OTHER
     Route: 058
     Dates: start: 20090414
  4. LETAIRIS [Concomitant]

REACTIONS (3)
  - PALPITATIONS [None]
  - TINNITUS [None]
  - VISION BLURRED [None]
